FAERS Safety Report 9760951 (Version 5)
Quarter: 2014Q1

REPORT INFORMATION
  Report Type: Spontaneous
  Country: US (occurrence: US)
  Receive Date: 20131216
  Receipt Date: 20140318
  Transmission Date: 20141002
  Serious: Yes (Hospitalization, Other)
  Sender: FDA-Public Use
  Company Number: US-PFIZER INC-2013357733

PATIENT
  Age: 66 Year
  Sex: Male
  Weight: 72.56 kg

DRUGS (27)
  1. LYRICA [Suspect]
     Indication: DIABETIC NEUROPATHY
     Dosage: 200 MG, 3X/DAY
     Route: 048
     Dates: start: 2010
  2. LYRICA [Suspect]
     Dosage: 25 MG, DAILY
     Route: 048
     Dates: start: 20130429
  3. LYRICA [Suspect]
     Dosage: 200 MG, 3X/DAY
     Route: 048
     Dates: start: 20130916
  4. MEVACOR [Concomitant]
     Indication: BLOOD CHOLESTEROL
     Dosage: 40 MG, 1X/DAY (NIGHTLY)
     Route: 048
     Dates: start: 20130611
  5. INSULIN [Concomitant]
     Indication: DIABETES MELLITUS
     Dosage: UNK
  6. LISINOPRIL [Concomitant]
     Dosage: 20 MG, DAILY
     Route: 048
     Dates: start: 20130802
  7. LANTUS [Concomitant]
     Dosage: 20 UNITS AT BEDTIME
     Route: 058
     Dates: start: 20121214
  8. HUMALOG [Concomitant]
     Dosage: 100UNIT/ML SOLUTION, 1 SUBCUTANEOUS SLIDING SCALE
     Route: 058
     Dates: start: 20121214
  9. PRILOSEC [Concomitant]
     Dosage: 40 MG, DAILY
     Route: 048
     Dates: start: 20130611
  10. BETIMOL [Concomitant]
     Dosage: 1 DF, 2X/DAY
     Route: 047
     Dates: start: 20121214
  11. XALATAN [Concomitant]
     Dosage: 0.005 %, 1X/DAY (1 DROP AT NIGHT)
     Route: 047
     Dates: start: 20130614
  12. ULTRACET [Concomitant]
     Indication: PAIN
     Dosage: 1 DF, AS NEEDED (37.5-325 EVERY SIX HRS AS NEEDED)
     Route: 048
  13. SYSTANE [Concomitant]
     Dosage: 0.4-0.3% SOLUTION AT BEDTIME
     Route: 047
  14. TRUBIOTICS [Concomitant]
     Dosage: UNK
     Route: 048
  15. ASPIRIN [Concomitant]
     Dosage: 81 MG, 1X/DAY (NIGHTLY)
     Route: 048
  16. LIQUIFILM TEARS [Concomitant]
     Dosage: 1 DF, AS NEEDED
     Route: 047
  17. LASIX [Concomitant]
     Dosage: 20MG DAILY IN THE MORNING
     Route: 048
  18. MULTIVITAMINS [Concomitant]
     Dosage: 1 DF, DAILY
     Route: 048
  19. OMEGA 3 [Concomitant]
     Dosage: 2 G, DAILY
     Route: 048
  20. ACYCLOVIR [Concomitant]
     Dosage: 800 MG, 2X/DAY
     Route: 048
  21. PLAVIX [Concomitant]
     Dosage: 75 MG, DAILY
     Route: 048
     Dates: end: 20130610
  22. OFLOXACIN [Concomitant]
     Dosage: 0.3 %, 1 DROP EACH EYE AT BEDTIME
     Route: 047
  23. VITAMIN C [Concomitant]
     Dosage: 1000 MG, DAILY
     Route: 048
  24. IMODIUM [Concomitant]
     Dosage: 2 MG, 3X/DAY
  25. EMLA CREAM [Concomitant]
     Dosage: 2.5 %, UNK
     Route: 061
  26. ATROPINE SULFATE/DIPHENOXYLATE HYDROCHLORIDE [Concomitant]
     Dosage: 1 DF, (EVERY 6 HOURS)
     Route: 048
  27. PROCHLORPERAZINE MALEATE [Concomitant]
     Indication: NAUSEA
     Dosage: 1 DF, AS NEEDED (EVERY 6 HRS)
     Route: 048

REACTIONS (14)
  - Diabetic foot [Unknown]
  - Clostridium difficile infection [Recovered/Resolved]
  - Blood pressure decreased [Recovered/Resolved]
  - Diarrhoea [Recovered/Resolved]
  - Poor peripheral circulation [Unknown]
  - Skin ulcer [Unknown]
  - Phantom pain [Unknown]
  - Type V hyperlipidaemia [Unknown]
  - Gait disturbance [Recovering/Resolving]
  - Peripheral arterial occlusive disease [Unknown]
  - Colon cancer [Unknown]
  - Dizziness [Unknown]
  - Nausea [Unknown]
  - Vomiting [Unknown]
